FAERS Safety Report 5017014-3 (Version None)
Quarter: 2006Q2

REPORT INFORMATION
  Report Type: 
  Country: None (occurrence: None)
  Receive Date: 20060525
  Receipt Date: 20060518
  Transmission Date: 20061013
  Serious: Yes (Hospitalization)
  Sender: FDA-Public Use
  Company Number: LTI2006A00123

PATIENT
  Age: 79 Year
  Sex: Male

DRUGS (6)
  1. ACTOS [Suspect]
     Indication: DIABETES MELLITUS NON-INSULIN-DEPENDENT
     Dosage: (1 IN 1 D); ORAL
     Route: 048
     Dates: start: 20051215, end: 20060128
  2. ALTIM (CORTIVAZOL) [Suspect]
     Indication: ARTHRALGIA
     Dates: start: 20060105, end: 20060110
  3. IXPRIM (PARACETAMOL, TRAMADOL HYDROCHLORIDE) [Concomitant]
  4. FLECAINIDE ACETATE [Concomitant]
  5. BREXIN (PIROXICAM) [Concomitant]
  6. LEVOTHYROXINE SODIUM [Suspect]
     Indication: HYPOTHYROIDISM
     Dosage: 1 DF (1 DF, 1 IN 1 D)
     Route: 048
     Dates: start: 20051015

REACTIONS (1)
  - HYPERTENSION [None]
